FAERS Safety Report 6545049-8 (Version None)
Quarter: 2010Q1

REPORT INFORMATION
  Report Type: 
  Country: None (occurrence: None)
  Receive Date: 20100121
  Receipt Date: 20100118
  Transmission Date: 20100710
  Serious: Yes (Congenital Anomaly)
  Sender: FDA-Public Use
  Company Number: B0626605A

PATIENT
  Sex: Female

DRUGS (17)
  1. PAROXETINE HCL [Suspect]
     Indication: DRUG USE FOR UNKNOWN INDICATION
     Dosage: 1UNIT TWICE PER DAY
     Dates: end: 20090401
  2. LYRICA [Suspect]
     Indication: DRUG USE FOR UNKNOWN INDICATION
     Dosage: 1UNIT THREE TIMES PER DAY
     Dates: end: 20090401
  3. DOXIUM [Suspect]
     Indication: DRUG USE FOR UNKNOWN INDICATION
     Dosage: 1UNIT THREE TIMES PER DAY
     Dates: end: 20090401
  4. DICYNONE [Suspect]
     Indication: DRUG USE FOR UNKNOWN INDICATION
     Dosage: 1UNIT PER DAY
     Dates: end: 20090401
  5. ALTEIS [Suspect]
     Indication: DRUG USE FOR UNKNOWN INDICATION
     Dates: end: 20090401
  6. TERCIAN [Suspect]
     Indication: DRUG USE FOR UNKNOWN INDICATION
  7. PRAZEPAM [Suspect]
     Indication: DRUG USE FOR UNKNOWN INDICATION
     Dates: end: 20090401
  8. SEROPRAM [Suspect]
     Indication: DRUG USE FOR UNKNOWN INDICATION
     Dates: start: 20090401
  9. DAFALGAN 500 [Concomitant]
  10. OROCAL [Concomitant]
  11. DEXERYL (FRANCE) [Concomitant]
  12. APIDRA [Concomitant]
  13. FOLIC ACID [Concomitant]
  14. POTASSIUM IODIDE [Concomitant]
  15. TPN [Concomitant]
  16. NOVORAPID [Concomitant]
  17. ANAFRANIL [Concomitant]

REACTIONS (9)
  - ATRIAL SEPTAL DEFECT [None]
  - BREECH PRESENTATION [None]
  - CAESAREAN SECTION [None]
  - CONGENITAL MUSCULOSKELETAL ANOMALY [None]
  - DRUG EXPOSURE DURING PREGNANCY [None]
  - DRUG WITHDRAWAL SYNDROME NEONATAL [None]
  - MATERNAL DRUGS AFFECTING FOETUS [None]
  - POLYHYDRAMNIOS [None]
  - PREMATURE BABY [None]
